FAERS Safety Report 6757554-X (Version None)
Quarter: 2010Q2

REPORT INFORMATION
  Report Type: 
  Country: None (occurrence: None)
  Receive Date: 20100607
  Receipt Date: 20100531
  Transmission Date: 20101027
  Serious: Yes (Other)
  Sender: FDA-Public Use
  Company Number: US-TEVA-236481USA

PATIENT
  Age: 58 Year
  Sex: Female

DRUGS (5)
  1. DOXORUBICIN HCL [Suspect]
     Indication: BREAST CANCER IN SITU
     Dates: start: 19900101, end: 19910101
  2. FLUOROURACIL [Suspect]
     Indication: BREAST CANCER IN SITU
     Dates: start: 19900101, end: 19910101
  3. METHOTREXATE [Suspect]
     Indication: BREAST CANCER IN SITU
     Dates: start: 19900101, end: 19910101
  4. THIOTEPA [Suspect]
     Indication: BREAST CANCER IN SITU
     Dates: start: 19900101, end: 19910101
  5. CYCLOPHOSPHAMIDE [Suspect]
     Indication: BREAST CANCER IN SITU
     Dates: start: 19900101, end: 19910101

REACTIONS (1)
  - BURKITT'S LYMPHOMA [None]
